FAERS Safety Report 9866340 (Version 1)
Quarter: 2014Q1

REPORT INFORMATION
  Report Type: Spontaneous
  Country: US (occurrence: US)
  Receive Date: 20140203
  Receipt Date: 20140203
  Transmission Date: 20141002
  Serious: No
  Sender: FDA-Public Use
  Company Number: US-ALLERGAN-1319426US

PATIENT
  Age: 78 Year
  Sex: Female

DRUGS (8)
  1. RESTASIS [Suspect]
     Indication: DRY EYE
     Dosage: 2 GTT, QD
     Route: 047
     Dates: start: 201308
  2. RESTASIS [Suspect]
     Dosage: 2 GTT, BID
     Route: 047
     Dates: end: 201308
  3. REFRESH OPTIVE ADVANCED [Concomitant]
     Indication: DRY EYE
     Dosage: UNK
  4. THERATEARS [Concomitant]
     Indication: DRY EYE
     Dosage: UNK
     Dates: start: 201310
  5. THERATEARS [Concomitant]
     Indication: EYE ALLERGY
  6. PATADAY [Concomitant]
     Indication: DRY EYE
     Dosage: UNK
     Dates: end: 201308
  7. PATADAY [Concomitant]
     Indication: EYE ALLERGY
  8. MEDICATIONS NOS [Concomitant]
     Indication: PRODUCT USED FOR UNKNOWN INDICATION
     Dosage: UNK

REACTIONS (4)
  - Visual impairment [Not Recovered/Not Resolved]
  - Inappropriate schedule of drug administration [Unknown]
  - Headache [Recovered/Resolved]
  - Vision blurred [Recovered/Resolved]
